FAERS Safety Report 21895523 (Version 4)
Quarter: 2023Q2

REPORT INFORMATION
  Report Type: Report from Study
  Country: IT (occurrence: IT)
  Receive Date: 20230123
  Receipt Date: 20230505
  Transmission Date: 20230721
  Serious: Yes (Hospitalization)
  Sender: FDA-Public Use
  Company Number: IT-TAKEDA-2023TUS006697

PATIENT
  Age: 12 Year
  Sex: Female

DRUGS (2)
  1. HUMAN IMMUNOGLOBULIN G\HYALURONIDASE RECOMBINANT HUMAN [Suspect]
     Active Substance: HUMAN IMMUNOGLOBULIN G\HYALURONIDASE RECOMBINANT HUMAN
     Indication: Primary immunodeficiency syndrome
     Dosage: 12.5 GRAM, MONTHLY
     Route: 058
  2. HUMAN IMMUNOGLOBULIN G\HYALURONIDASE RECOMBINANT HUMAN [Suspect]
     Active Substance: HUMAN IMMUNOGLOBULIN G\HYALURONIDASE RECOMBINANT HUMAN
     Dosage: 15 GRAM, 2/MONTH
     Route: 058

REACTIONS (3)
  - Subcutaneous abscess [Recovered/Resolved]
  - Gastroenteritis [Recovered/Resolved]
  - Weight fluctuation [Unknown]

NARRATIVE: CASE EVENT DATE: 20230117
